FAERS Safety Report 18248684 (Version 1)
Quarter: 2020Q3

REPORT INFORMATION
  Report Type: Spontaneous
  Country: US (occurrence: US)
  Receive Date: 20200909
  Receipt Date: 20200909
  Transmission Date: 20201103
  Serious: No
  Sender: FDA-Public Use
  Company Number: US-AMERICAN REGENT INC-2020000446

PATIENT
  Age: 35 Year
  Sex: Female
  Weight: 103 kg

DRUGS (3)
  1. INJECTAFER [Suspect]
     Active Substance: FERRIC CARBOXYMALTOSE
     Indication: MENORRHAGIA
     Dosage: 750 MILLIGRAM
     Route: 042
     Dates: start: 20200206, end: 20200206
  2. INJECTAFER [Suspect]
     Active Substance: FERRIC CARBOXYMALTOSE
     Indication: GASTROINTESTINAL HAEMORRHAGE
  3. INJECTAFER [Suspect]
     Active Substance: FERRIC CARBOXYMALTOSE
     Indication: BLOOD LOSS ANAEMIA
     Dosage: 750 MILLIGRAM
     Route: 042
     Dates: start: 20191125, end: 20191125

REACTIONS (2)
  - Product use in unapproved indication [Unknown]
  - Hypophosphataemia [Recovered/Resolved]

NARRATIVE: CASE EVENT DATE: 20191125
